FAERS Safety Report 17684935 (Version 5)
Quarter: 2020Q2

REPORT INFORMATION
  Report Type: Report from Study
  Country: US (occurrence: US)
  Receive Date: 20200420
  Receipt Date: 20200528
  Transmission Date: 20200714
  Serious: Yes (Hospitalization, Other)
  Sender: FDA-Public Use
  Company Number: NVSC2020US103187

PATIENT
  Age: 65 Year
  Sex: Male
  Weight: 104.31 kg

DRUGS (5)
  1. ELIQUIS [Concomitant]
     Active Substance: APIXABAN
     Indication: PULMONARY ARTERIAL HYPERTENSION
     Dosage: UNK
     Route: 065
  2. AMBRISENTAN [Concomitant]
     Active Substance: AMBRISENTAN
     Indication: PULMONARY ARTERIAL HYPERTENSION
     Dosage: UNK
     Route: 065
  3. TREPROSTINIL. [Suspect]
     Active Substance: TREPROSTINIL
     Indication: PULMONARY ARTERIAL HYPERTENSION
     Dosage: 58 NG/KG/MIN, CONTINOUSLY
     Route: 042
     Dates: start: 20200319
  4. METOLAZONE. [Suspect]
     Active Substance: METOLAZONE
     Indication: PRODUCT USED FOR UNKNOWN INDICATION
     Route: 065
  5. ADCIRCA [Concomitant]
     Active Substance: TADALAFIL
     Indication: PULMONARY ARTERIAL HYPERTENSION
     Dosage: UNK
     Route: 065

REACTIONS (7)
  - Pruritus [Unknown]
  - Weight increased [Unknown]
  - Urticaria [Unknown]
  - Drug hypersensitivity [Unknown]
  - Renal failure [Unknown]
  - Suture rupture [Unknown]
  - Oedema [Unknown]

NARRATIVE: CASE EVENT DATE: 20200501
